FAERS Safety Report 13402746 (Version 1)
Quarter: 2017Q2

REPORT INFORMATION
  Report Type: Spontaneous
  Country: US (occurrence: US)
  Receive Date: 20170404
  Receipt Date: 20170404
  Transmission Date: 20170830
  Serious: No
  Sender: FDA-Public Use
  Company Number: US-ROCHE-1737548

PATIENT
  Age: 62 Year
  Sex: Female

DRUGS (1)
  1. KADCYLA [Suspect]
     Active Substance: ADO-TRASTUZUMAB EMTANSINE
     Indication: BREAST CANCER METASTATIC
     Route: 065
     Dates: start: 200602

REACTIONS (6)
  - Retching [Unknown]
  - Crying [Unknown]
  - Fatigue [Unknown]
  - Vomiting [Unknown]
  - Ill-defined disorder [Unknown]
  - Diarrhoea [Unknown]
